FAERS Safety Report 8214022-6 (Version None)
Quarter: 2012Q1

REPORT INFORMATION
  Report Type: 
  Country: None (occurrence: None)
  Receive Date: 20120316
  Receipt Date: 20120314
  Transmission Date: 20120608
  Serious: No
  Sender: FDA-Public Use
  Company Number: US-PFIZER INC-2012058484

PATIENT
  Sex: Female
  Weight: 68 kg

DRUGS (6)
  1. RECLAST [Concomitant]
     Indication: OSTEOPOROSIS
     Dosage: UNK, YEARLY
     Route: 042
  2. ALPRAZOLAM [Concomitant]
     Indication: PANIC ATTACK
  3. CHANTIX [Suspect]
     Indication: SMOKING CESSATION THERAPY
     Dosage: 0.5 MG, DAILY
     Route: 048
     Dates: start: 20120303
  4. CHANTIX [Suspect]
     Dosage: UNK
     Route: 048
  5. CIMETIDINE [Concomitant]
     Indication: GASTROOESOPHAGEAL REFLUX DISEASE
     Dosage: 400 MG, 2X/DAY
  6. ALPRAZOLAM [Concomitant]
     Indication: ANXIETY
     Dosage: UNK

REACTIONS (6)
  - INSOMNIA [None]
  - DEPRESSED MOOD [None]
  - DRY MOUTH [None]
  - FEELING ABNORMAL [None]
  - MALAISE [None]
  - BACK PAIN [None]
